FAERS Safety Report 7573338-7 (Version None)
Quarter: 2011Q2

REPORT INFORMATION
  Report Type: 
  Country: None (occurrence: None)
  Receive Date: 20110627
  Receipt Date: 20110620
  Transmission Date: 20111010
  Serious: Yes (Hospitalization)
  Sender: FDA-Public Use
  Company Number: US-AMGEN-USACT2011028863

PATIENT
  Age: 67 Year
  Sex: Male
  Weight: 95.782 kg

DRUGS (6)
  1. BYSTOLIC [Concomitant]
     Dosage: 5 MG, QD
     Route: 048
     Dates: start: 20090504
  2. CINACALCET HYDROCHLORIDE [Suspect]
     Indication: HYPERPARATHYROIDISM SECONDARY
     Dosage: UNK
     Dates: start: 20070214
  3. RENAVIT [Concomitant]
     Dosage: 0.8 MG, QD
     Route: 048
  4. PHOSLO [Concomitant]
     Dosage: 66 MG, BID
     Route: 048
     Dates: start: 20101208
  5. NORVASC [Concomitant]
     Dosage: 10 MG, QD
     Route: 048
     Dates: start: 20080101
  6. PLACEBO [Suspect]
     Indication: HYPERPARATHYROIDISM SECONDARY
     Dosage: UNK
     Dates: start: 20070214

REACTIONS (1)
  - MYOCARDIAL INFARCTION [None]
